FAERS Safety Report 9528540 (Version 1)
Quarter: 2013Q2

REPORT INFORMATION
  Report Type: Spontaneous
  Country: US (occurrence: None)
  Receive Date: 20130520
  Receipt Date: 20130520
  Transmission Date: 20140414
  Serious: Yes (Death, Other)
  Sender: FDA-Public Use
  Company Number: 075156

PATIENT
  Age: 19 Year
  Sex: Male

DRUGS (3)
  1. ALPRAZOLAM [Suspect]
     Dosage: TO NOT CONTINUING?
  2. MARIJUANA [Suspect]
     Dosage: TO NOT CONTINUING??
  3. FENTANYL [Suspect]
     Dosage: TO NOT CONTINUING??
     Route: 062

REACTIONS (1)
  - Drug abuse [None]
